APPROVED DRUG PRODUCT: PROPRANOLOL HYDROCHLORIDE
Active Ingredient: PROPRANOLOL HYDROCHLORIDE
Strength: 80MG
Dosage Form/Route: TABLET;ORAL
Application: A070757 | Product #001
Applicant: PUREPAC PHARMACEUTICAL CO
Approved: Nov 3, 1986 | RLD: No | RS: No | Type: DISCN